FAERS Safety Report 5964472-3 (Version None)
Quarter: 2008Q4

REPORT INFORMATION
  Report Type: 
  Country: None (occurrence: None)
  Receive Date: 20081124
  Receipt Date: 20081124
  Transmission Date: 20090506
  Serious: Yes (Life-Threatening, Other)
  Sender: FDA-Public Use
  Company Number: None

PATIENT
  Age: 74 Year
  Sex: Female
  Weight: 65.7716 kg

DRUGS (2)
  1. ISOSORBIDE MONONITRATE [Suspect]
     Indication: PAIN
     Dosage: 90 MG ONCE A DAY
     Dates: start: 20080927, end: 20081122
  2. ISOSORBIDE MONONITRATE [Suspect]
     Indication: PAIN
     Dates: start: 20080927, end: 20081122

REACTIONS (1)
  - PRODUCT QUALITY ISSUE [None]
